FAERS Safety Report 6456204-X (Version None)
Quarter: 2009Q4

REPORT INFORMATION
  Report Type: 
  Country: None (occurrence: None)
  Receive Date: 20091125
  Receipt Date: 20091111
  Transmission Date: 20100525
  Serious: Yes (Hospitalization, Other)
  Sender: FDA-Public Use
  Company Number: US-ELI_LILLY_AND_COMPANY-US200911005055

PATIENT
  Sex: Female

DRUGS (15)
  1. FORTEO [Suspect]
     Dosage: UNK, UNK
     Dates: start: 20090929, end: 20091017
  2. FORTEO [Suspect]
     Dates: start: 20091107
  3. LUNESTA [Concomitant]
     Indication: INSOMNIA
  4. PROTONIX [Concomitant]
  5. PROPRANOLOL [Concomitant]
  6. NORVASC [Concomitant]
  7. HYDROXYZINE [Concomitant]
  8. GABAPENTIN [Concomitant]
  9. ASPIRIN [Concomitant]
  10. XANAX [Concomitant]
  11. DETROL LA [Concomitant]
  12. VITAMIN D [Concomitant]
  13. LORATADINE [Concomitant]
  14. XOPENEX [Concomitant]
  15. ULTRAM [Concomitant]

REACTIONS (11)
  - ASTHENIA [None]
  - BALANCE DISORDER [None]
  - BLOOD CALCIUM INCREASED [None]
  - BLOOD IRON INCREASED [None]
  - DIARRHOEA [None]
  - FALL [None]
  - FATIGUE [None]
  - MUSCULAR WEAKNESS [None]
  - NAUSEA [None]
  - OXYGEN SATURATION DECREASED [None]
  - VOMITING [None]
